FAERS Safety Report 6741295-9 (Version None)
Quarter: 2010Q2

REPORT INFORMATION
  Report Type: 
  Country: None (occurrence: None)
  Receive Date: 20100526
  Receipt Date: 20100517
  Transmission Date: 20101027
  Serious: Yes (Hospitalization)
  Sender: FDA-Public Use
  Company Number: JP-ASTRAZENECA-2008AP07669

PATIENT
  Age: 56 Year
  Sex: Male
  Weight: 47 kg

DRUGS (3)
  1. IRESSA [Suspect]
     Indication: NON-SMALL CELL LUNG CANCER
     Route: 048
     Dates: start: 20080716, end: 20080827
  2. LOXONIN [Concomitant]
     Indication: PYREXIA
     Route: 048
     Dates: start: 20080804, end: 20080827
  3. MUCOSTA [Concomitant]
     Indication: PROPHYLAXIS AGAINST GASTROINTESTINAL ULCER
     Route: 048
     Dates: start: 20080806, end: 20080827

REACTIONS (8)
  - CONTRACTED BLADDER [None]
  - CYSTITIS [None]
  - CYSTITIS HAEMORRHAGIC [None]
  - HAEMATURIA [None]
  - HEPATIC FUNCTION ABNORMAL [None]
  - PNEUMONIA [None]
  - POLLAKIURIA [None]
  - RENAL IMPAIRMENT [None]
